FAERS Safety Report 18109561 (Version 2)
Quarter: 2020Q4

REPORT INFORMATION
  Report Type: Report from Study
  Country: IT (occurrence: IT)
  Receive Date: 20200804
  Receipt Date: 20201102
  Transmission Date: 20210113
  Serious: Yes (Other)
  Sender: FDA-Public Use
  Company Number: IT-MYLANLABS-2020M1068485

PATIENT
  Age: 63 Year
  Sex: Female
  Weight: 48 kg

DRUGS (5)
  1. LEVODOPA/CARBIDOPA [Concomitant]
     Active Substance: CARBIDOPA\LEVODOPA
     Indication: PARKINSON^S DISEASE
     Dosage: 100/25 MILLIGRAM, 0.5 DOSAGE FORM, 5 TIMES A DAY
     Route: 048
     Dates: start: 2010
  2. PRAMIPEXOLE. [Interacting]
     Active Substance: PRAMIPEXOLE
     Dosage: 2.1 MILLIGRAM, QD
  3. PRAMIPEXOLE. [Suspect]
     Active Substance: PRAMIPEXOLE
     Indication: PARKINSON^S DISEASE
     Dosage: 1.05 MILLIGRAM, 1X / DAY
     Route: 048
     Dates: start: 2010, end: 20200715
  4. PRAMIPEXOLE. [Interacting]
     Active Substance: PRAMIPEXOLE
     Dosage: 0.52 MILLIGRAM, 1X / DAY
     Route: 048
     Dates: start: 20200716
  5. ONGENTYS [Interacting]
     Active Substance: OPICAPONE
     Indication: PARKINSON^S DISEASE
     Dosage: 50 MILLIGRAM, 1X / DAY
     Route: 048
     Dates: start: 20200701

REACTIONS (2)
  - Drug interaction [Not Recovered/Not Resolved]
  - Hallucination [Not Recovered/Not Resolved]

NARRATIVE: CASE EVENT DATE: 20200710
